FAERS Safety Report 7900917-7 (Version None)
Quarter: 2011Q4

REPORT INFORMATION
  Report Type: 
  Country: None (occurrence: None)
  Receive Date: 20111108
  Receipt Date: 20111027
  Transmission Date: 20120403
  Serious: Yes (Life-Threatening, Hospitalization, Other)
  Sender: FDA-Public Use
  Company Number: CA-ELI_LILLY_AND_COMPANY-CA201110007255

PATIENT
  Sex: Male

DRUGS (12)
  1. ZYPREXA [Suspect]
     Dosage: 5 MG, EACH EVENING
  2. DILTIAZEM HCL [Concomitant]
  3. MIRTAZAPINE [Concomitant]
  4. AMITRIPTYLINE HCL [Concomitant]
  5. ZYPREXA [Suspect]
     Dosage: 10 MG, EACH EVENING
     Route: 048
  6. ASPIRIN [Concomitant]
  7. DESIPRAMIDE HCL [Concomitant]
  8. METHYLPHENIDATE [Concomitant]
  9. GABAPENTIN [Concomitant]
  10. WELLBUTRIN [Concomitant]
  11. EFFEXOR [Concomitant]
  12. RAMIPRIL [Concomitant]

REACTIONS (25)
  - TACHYCARDIA [None]
  - RASH [None]
  - ARRHYTHMIA [None]
  - PARONYCHIA [None]
  - CORONARY ARTERY DISEASE [None]
  - OEDEMA [None]
  - ELECTROCARDIOGRAM QT PROLONGED [None]
  - CEREBROVASCULAR ACCIDENT [None]
  - HYPERTENSION [None]
  - LYMPHOPENIA [None]
  - HEPATIC ENZYME INCREASED [None]
  - DIABETIC COMA [None]
  - HAEMOGLOBIN DECREASED [None]
  - VASCULAR INSUFFICIENCY [None]
  - ORTHOSTATIC HYPOTENSION [None]
  - DYSLIPIDAEMIA [None]
  - SYNCOPE [None]
  - TRANSIENT ISCHAEMIC ATTACK [None]
  - DIABETES MELLITUS [None]
  - HYPOGLYCAEMIA [None]
  - LOSS OF CONSCIOUSNESS [None]
  - DEPRESSED LEVEL OF CONSCIOUSNESS [None]
  - HAEMATEMESIS [None]
  - SERUM FERRITIN INCREASED [None]
  - CHOLELITHIASIS [None]
